FAERS Safety Report 15157826 (Version 2)
Quarter: 2020Q4

REPORT INFORMATION
  Report Type: Spontaneous
  Country: US (occurrence: US)
  Receive Date: 20180718
  Receipt Date: 20201111
  Transmission Date: 20210113
  Serious: Yes (Disabling)
  Sender: FDA-Public Use
  Company Number: US-TEVA-2018-US-927979

PATIENT
  Age: 52 Year
  Sex: Female

DRUGS (18)
  1. BENADRYL  25 MILLIGRAM [Concomitant]
     Dates: start: 20140307
  2. BENADRYL  25 MILLIGRAM [Concomitant]
     Dates: start: 20140328
  3. ZANTAC 50 MILLIGRAM [Concomitant]
     Dates: start: 20140307
  4. DOCETAXEL SAGENT [Suspect]
     Active Substance: DOCETAXEL
     Dosage: NUMBER OF CYCLES: 03; EVERY THREE WEEKS. ADMINISTERED ON 07-MAR-2014 AND 28-MAR-2014
     Route: 065
     Dates: start: 20140328
  5. ZOFRAN 12 MILLIGRAM [Concomitant]
     Dates: start: 20140307
  6. DOCETAXEL SAGENT [Suspect]
     Active Substance: DOCETAXEL
     Indication: BREAST CANCER FEMALE
     Dosage: NUMBER OF CYCLES: 03; EVERY THREE WEEKS. ADMINISTERED ON 07-MAR-2014 AND 28-MAR-2014
     Route: 065
     Dates: start: 20140307
  7. DOCETAXEL SANDOZ [Suspect]
     Active Substance: DOCETAXEL
     Indication: BREAST CANCER FEMALE
     Dosage: DOSAGE: UNKNOWN; NUMBER OF CYCLES: 03; EVERY THREE WEEKS
     Route: 065
     Dates: start: 20140307, end: 20140307
  8. ZOFRAN 12 MILLIGRAM [Concomitant]
     Dates: start: 20140214
  9. DECADRON 8 MILLIGRAM [Concomitant]
     Dates: start: 20140307
  10. DOCETAXEL SANOFI [Suspect]
     Active Substance: DOCETAXEL
     Indication: BREAST CANCER FEMALE
     Dosage: 130 MG; NUMBER OF CYCLES: 03; EVERY THREE WEEKS. ADMINISTERED ON 14-FEB-2014 TO 14-FEB-2014
     Route: 065
     Dates: start: 20140214
  11. DECADRON 8 MILLIGRAM [Concomitant]
     Dates: start: 20140214
  12. ZANTAC 50 MILLIGRAM [Concomitant]
     Dates: start: 20140214
  13. ZOFRAN 12 MILLIGRAM [Concomitant]
     Dates: start: 20140328
  14. CYTOXAN [Concomitant]
     Active Substance: CYCLOPHOSPHAMIDE
     Indication: BREAST CANCER FEMALE
     Dosage: DOSAGE: 1050 MILLIGRAMS FREQUENCY: CYCLES.
     Dates: start: 20140214, end: 20140328
  15. DECADRON 8 MILLIGRAM [Concomitant]
     Dates: start: 20140328
  16. ZANTAC 50 MILLIGRAM [Concomitant]
     Dates: start: 20140328
  17. DOCETAXEL SANOFI [Suspect]
     Active Substance: DOCETAXEL
     Dosage: 130 MG; NUMBER OF CYCLES: 03; EVERY THREE WEEKS. ADMINISTERED ON 14-FEB-2014 T0 28-MAR-2014
     Route: 065
     Dates: start: 20140328
  18. BENADRYL  25 MILLIGRAM [Concomitant]
     Dates: start: 20140214

REACTIONS (3)
  - Hair colour changes [Not Recovered/Not Resolved]
  - Alopecia areata [Not Recovered/Not Resolved]
  - Hair texture abnormal [Not Recovered/Not Resolved]

NARRATIVE: CASE EVENT DATE: 20140214
